FAERS Safety Report 22356194 (Version 1)
Quarter: 2023Q2

REPORT INFORMATION
  Report Type: Spontaneous
  Country: ES (occurrence: ES)
  Receive Date: 20230523
  Receipt Date: 20230523
  Transmission Date: 20230721
  Serious: Yes (Other)
  Sender: FDA-Public Use
  Company Number: None

PATIENT
  Age: 25 Year
  Sex: Female
  Weight: 54 kg

DRUGS (4)
  1. DUPIXENT [Suspect]
     Active Substance: DUPILUMAB
     Indication: Dermatitis atopic
     Dosage: 300 MG, QOW
     Route: 058
     Dates: start: 201805, end: 20180918
  2. LORAZEPAM [Concomitant]
     Active Substance: LORAZEPAM
     Indication: Insomnia
  3. ALPRAZOLAM [Concomitant]
     Active Substance: ALPRAZOLAM
  4. METHYLPREDNISOLONE [Concomitant]
     Active Substance: METHYLPREDNISOLONE
     Dosage: 0.5 DF, QD (PATIENT STARTED WITH 16 MG PER DAY AND DECREASED THE REGIMEN TO 8 MG PER DAY.)
     Route: 048
     Dates: start: 201712, end: 201804

REACTIONS (2)
  - Vomiting [Not Recovered/Not Resolved]
  - Abnormal loss of weight [Not Recovered/Not Resolved]

NARRATIVE: CASE EVENT DATE: 20180501
